FAERS Safety Report 10573051 (Version 2)
Quarter: 2014Q4

REPORT INFORMATION
  Report Type: Spontaneous
  Country: JP (occurrence: JP)
  Receive Date: 20141110
  Receipt Date: 20141111
  Transmission Date: 20150529
  Serious: Yes (Hospitalization, Other)
  Sender: FDA-Public Use
  Company Number: JP-GLAXOSMITHKLINE-JP2014JPN016158

PATIENT
  Age: 75 Year
  Sex: Female

DRUGS (1)
  1. VALTREX [Suspect]
     Active Substance: VALACYCLOVIR HYDROCHLORIDE
     Indication: HERPES ZOSTER
     Dosage: 3000 MG, QD
     Route: 048

REACTIONS (4)
  - Decreased appetite [Unknown]
  - Toxic encephalopathy [Recovering/Resolving]
  - Acute kidney injury [Recovered/Resolved]
  - Depressed level of consciousness [Recovering/Resolving]
